FAERS Safety Report 10086663 (Version 3)
Quarter: 2016Q4

REPORT INFORMATION
  Report Type: Spontaneous
  Country: JP (occurrence: JP)
  Receive Date: 20140418
  Receipt Date: 20161012
  Transmission Date: 20170206
  Serious: Yes (Death, Other)
  Sender: FDA-Public Use
  Company Number: JP-MALLINCKRODT-T201401891

PATIENT
  Age: 70 Year
  Sex: Male

DRUGS (15)
  1. METHADONE [Suspect]
     Active Substance: METHADONE HYDROCHLORIDE
     Dosage: 10 MG (20 MG DAILY DOSE)
     Route: 048
     Dates: start: 20140218, end: 20140328
  2. DECADRON [Concomitant]
     Active Substance: DEXAMETHASONE
     Dosage: 1 MG
     Route: 048
  3. OXINORM [Concomitant]
     Active Substance: OXYCODONE HYDROCHLORIDE
     Dosage: 5 MG, PRN
     Route: 048
     Dates: start: 20140121
  4. ESTRACYT [Concomitant]
     Active Substance: ESTRAMUSTINE PHOSPHATE SODIUM
     Dosage: 626.8 MG
     Route: 048
     Dates: end: 20140220
  5. LYRICA [Concomitant]
     Active Substance: PREGABALIN
     Dosage: 150 MG
     Route: 048
     Dates: end: 20140125
  6. METHADONE [Suspect]
     Active Substance: METHADONE HYDROCHLORIDE
     Indication: CANCER PAIN
     Dosage: 5 MG (15 MG DAILY DOSE)
     Route: 048
     Dates: start: 20140122, end: 20140128
  7. MAGMITT [Concomitant]
     Active Substance: MAGNESIUM OXIDE
     Dosage: 1000 MG
     Route: 048
  8. METHADONE [Suspect]
     Active Substance: METHADONE HYDROCHLORIDE
     Dosage: 10 MG (20 MG DAILY DOSE)
     Route: 048
     Dates: start: 20140129, end: 20140203
  9. TAKEPRON [Concomitant]
     Active Substance: LANSOPRAZOLE
     Dosage: 15 MG
     Route: 048
  10. OXYCONTIN [Concomitant]
     Active Substance: OXYCODONE HYDROCHLORIDE
     Dosage: 40 MG
     Route: 048
     Dates: end: 20140127
  11. METHADONE [Suspect]
     Active Substance: METHADONE HYDROCHLORIDE
     Dosage: 5 MG (15 MG DAILY DOSE)
     Route: 048
     Dates: start: 20140204, end: 20140217
  12. FUROSEMIDE. [Concomitant]
     Active Substance: FUROSEMIDE
     Dosage: 20 MG
     Route: 048
     Dates: end: 20140220
  13. MOBIC [Concomitant]
     Active Substance: MELOXICAM
     Dosage: 10 MG
     Route: 048
  14. TSUMURA CHOREITO (HERBALS\PHENIRAMINE\PHENYLPROPANOLAMINE\PHENYLTOLOXAMINE\PYRILAMINE) [Concomitant]
     Active Substance: HERBALS\PHENIRAMINE\PHENYLPROPANOLAMINE\PHENYLTOLOXAMINE\PYRILAMINE
     Dosage: 7.5 G
     Route: 048
     Dates: end: 20140220
  15. PANTOSIN [Concomitant]
     Active Substance: PANTETHINE
     Dosage: 300 MG
     Route: 048

REACTIONS (3)
  - Prostate cancer [Fatal]
  - Delirium [Unknown]
  - Somnolence [Recovering/Resolving]

NARRATIVE: CASE EVENT DATE: 20140204
